FAERS Safety Report 7498756-7 (Version None)
Quarter: 2011Q2

REPORT INFORMATION
  Report Type: 
  Country: None (occurrence: None)
  Receive Date: 20110516
  Receipt Date: 20110505
  Transmission Date: 20111010
  Serious: Yes (Death)
  Sender: FDA-Public Use
  Company Number: DKLU1070388

PATIENT
  Age: 3 Year
  Sex: Female

DRUGS (7)
  1. TOPAMAX [Concomitant]
  2. BANZEL (RUFINAMIDE) [Concomitant]
  3. PHENYTOIN [Concomitant]
  4. SABRIL [Suspect]
     Indication: EPILEPSY
     Dosage: 250 MG MILLIGRAM(S), 2  IN 1 DAY; 500 MG MILLIGRAM(S),2 IN 1 D, ORAL; 750 MG MILLIGRAM(S), 2 IN 1 D,
     Route: 048
     Dates: start: 20110412, end: 20110418
  5. SABRIL [Suspect]
     Indication: EPILEPSY
     Dosage: 250 MG MILLIGRAM(S), 2  IN 1 DAY; 500 MG MILLIGRAM(S),2 IN 1 D, ORAL; 750 MG MILLIGRAM(S), 2 IN 1 D,
     Route: 048
     Dates: start: 20110419
  6. SABRIL [Suspect]
     Indication: EPILEPSY
     Dosage: 250 MG MILLIGRAM(S), 2  IN 1 DAY; 500 MG MILLIGRAM(S),2 IN 1 D, ORAL; 750 MG MILLIGRAM(S), 2 IN 1 D,
     Route: 048
     Dates: start: 20110405, end: 20110411
  7. DILANTIN [Concomitant]

REACTIONS (1)
  - DEATH [None]
